FAERS Safety Report 8152678-7 (Version None)
Quarter: 2012Q1

REPORT INFORMATION
  Report Type: 
  Country: None (occurrence: None)
  Receive Date: 20120221
  Receipt Date: 20120209
  Transmission Date: 20120608
  Serious: Yes (Other)
  Sender: FDA-Public Use
  Company Number: JP-JNJFOC-20120112849

PATIENT
  Sex: Male

DRUGS (5)
  1. TASMOLIN [Concomitant]
     Indication: PROPHYLAXIS
  2. INVEGA [Suspect]
     Indication: SCHIZOPHRENIA, UNDIFFERENTIATED TYPE
     Route: 048
     Dates: start: 20110926
  3. INVEGA [Suspect]
     Route: 048
     Dates: start: 20110912, end: 20110925
  4. FLUNITRAZEPAM [Concomitant]
     Indication: SCHIZOPHRENIA, UNDIFFERENTIATED TYPE
     Route: 048
  5. RISPERIDONE [Suspect]
     Indication: SCHIZOPHRENIA, UNDIFFERENTIATED TYPE
     Dosage: TREATED 3 TO 4 YEARS BEFORE DISCONTINUATION
     Route: 048

REACTIONS (2)
  - PNEUMONIA ASPIRATION [None]
  - DYSPHAGIA [None]
